APPROVED DRUG PRODUCT: MITOMYCIN
Active Ingredient: MITOMYCIN
Strength: 20MG/VIAL
Dosage Form/Route: INJECTABLE;INJECTION
Application: A214505 | Product #002 | TE Code: AP
Applicant: MEITHEAL PHARMACEUTICALS INC
Approved: Sep 8, 2022 | RLD: No | RS: Yes | Type: RX